FAERS Safety Report 4708484-6 (Version None)
Quarter: 2005Q3

REPORT INFORMATION
  Report Type: 
  Country: None (occurrence: None)
  Receive Date: 20050707
  Receipt Date: 20050628
  Transmission Date: 20060218
  Serious: Yes (Other)
  Sender: FDA-Public Use
  Company Number: 200512213FR

PATIENT
  Age: 75 Year
  Sex: Male

DRUGS (4)
  1. LANTUS [Suspect]
     Indication: INSULIN-REQUIRING TYPE II DIABETES MELLITUS
     Route: 058
     Dates: start: 20050525, end: 20050621
  2. ACTRAPID [Concomitant]
     Indication: INSULIN-REQUIRING TYPE II DIABETES MELLITUS
     Route: 058
     Dates: start: 20050527
  3. GLUCOPHAGE [Concomitant]
     Indication: INSULIN-REQUIRING TYPE II DIABETES MELLITUS
     Route: 048
     Dates: start: 20050601
  4. ROCEPHIN [Concomitant]
     Indication: PROSTATITIS
     Dates: start: 20050620

REACTIONS (5)
  - DEVICE MALFUNCTION [None]
  - DIABETES MELLITUS INADEQUATE CONTROL [None]
  - INCORRECT DOSE ADMINISTERED [None]
  - KETOACIDOSIS [None]
  - PROSTATITIS [None]
